FAERS Safety Report 7911651-1 (Version None)
Quarter: 2011Q4

REPORT INFORMATION
  Report Type: 
  Country: None (occurrence: None)
  Receive Date: 20111114
  Receipt Date: 20111114
  Transmission Date: 20120403
  Serious: Yes (Death, Life-Threatening, Hospitalization, Disabling, Congenital Anomaly, Other)
  Sender: FDA-Public Use
  Company Number: None

PATIENT
  Age: 46 Year
  Sex: Female
  Weight: 111.13 kg

DRUGS (1)
  1. CYMBALTA [Suspect]
     Indication: FIBROMYALGIA
     Dosage: 1 TAB
     Route: 048
     Dates: start: 20091203, end: 20110613

REACTIONS (33)
  - IMPATIENCE [None]
  - DISTURBANCE IN ATTENTION [None]
  - THINKING ABNORMAL [None]
  - MOOD SWINGS [None]
  - AGGRESSION [None]
  - DIARRHOEA [None]
  - IRRITABILITY [None]
  - INSOMNIA [None]
  - GASTRIC DISORDER [None]
  - PRURITUS GENERALISED [None]
  - ANGER [None]
  - MOTION SICKNESS [None]
  - NAUSEA [None]
  - HYPERHIDROSIS [None]
  - LIBIDO DECREASED [None]
  - DECREASED APPETITE [None]
  - ANXIETY [None]
  - ABNORMAL DREAMS [None]
  - NIGHTMARE [None]
  - VOMITING [None]
  - AMNESIA [None]
  - DIZZINESS [None]
  - HEADACHE [None]
  - PARAESTHESIA [None]
  - MUSCLE TWITCHING [None]
  - WEIGHT INCREASED [None]
  - EMOTIONAL POVERTY [None]
  - FEELING ABNORMAL [None]
  - ABDOMINAL PAIN UPPER [None]
  - BRADYPHRENIA [None]
  - DRY MOUTH [None]
  - HEPATIC ENZYME ABNORMAL [None]
  - VERTIGO [None]
